FAERS Safety Report 13008958 (Version 2)
Quarter: 2017Q4

REPORT INFORMATION
  Report Type: Spontaneous
  Country: US (occurrence: US)
  Receive Date: 20161208
  Receipt Date: 20171025
  Transmission Date: 20180320
  Serious: Yes (Hospitalization, Disabling, Other)
  Sender: FDA-Public Use
  Company Number: US-009507513-1612USA002724

PATIENT
  Sex: Female

DRUGS (4)
  1. ALENDRONATE SODIUM. [Suspect]
     Active Substance: ALENDRONATE SODIUM
     Dosage: 10 MG, UNK
     Route: 048
     Dates: start: 20100106, end: 20101104
  2. ALENDRONATE SODIUM. [Suspect]
     Active Substance: ALENDRONATE SODIUM
     Dosage: 10 MG, UNK
     Route: 048
     Dates: start: 20080918, end: 20091128
  3. FOSAMAX [Suspect]
     Active Substance: ALENDRONATE SODIUM
     Indication: OSTEOPOROSIS
     Dosage: 10 MG, UNK
     Route: 048
     Dates: start: 1995, end: 200801
  4. ALENDRONATE SODIUM. [Suspect]
     Active Substance: ALENDRONATE SODIUM
     Indication: OSTEOPOROSIS
     Dosage: 10 MG, UNK
     Route: 048
     Dates: start: 20080215, end: 20080807

REACTIONS (8)
  - Osteoporosis [Not Recovered/Not Resolved]
  - Femoral neck fracture [Unknown]
  - Vitamin D deficiency [Unknown]
  - Osteoporosis [Unknown]
  - Fall [Unknown]
  - Femur fracture [Unknown]
  - Femur fracture [Unknown]
  - Hypertension [Unknown]

NARRATIVE: CASE EVENT DATE: 200308
